FAERS Safety Report 19979149 (Version 1)
Quarter: 2021Q4

REPORT INFORMATION
  Report Type: Spontaneous
  Country: US (occurrence: US)
  Receive Date: 20211021
  Receipt Date: 20211021
  Transmission Date: 20220303
  Serious: Yes (Other)
  Sender: FDA-Public Use
  Company Number: None

PATIENT
  Age: 34 Year
  Sex: Female

DRUGS (6)
  1. ENBREL [Suspect]
     Active Substance: ETANERCEPT
     Indication: Rheumatoid arthritis
     Dosage: ?          OTHER FREQUENCY:ONCE A WEEK;
     Route: 058
  2. TRAMADOL [Concomitant]
     Active Substance: TRAMADOL
  3. LORAZEPAM [Concomitant]
     Active Substance: LORAZEPAM
  4. SULFASALAZINE [Concomitant]
     Active Substance: SULFASALAZINE
  5. VITAMINS [Concomitant]
     Active Substance: VITAMINS
  6. ATROVENT HFA [Concomitant]
     Active Substance: IPRATROPIUM BROMIDE

REACTIONS (2)
  - Blood pressure increased [None]
  - Headache [None]

NARRATIVE: CASE EVENT DATE: 20210905
